FAERS Safety Report 8247619-8 (Version None)
Quarter: 2012Q1

REPORT INFORMATION
  Report Type: 
  Country: None (occurrence: None)
  Receive Date: 20120330
  Receipt Date: 20120322
  Transmission Date: 20120608
  Serious: Yes (Congenital Anomaly)
  Sender: FDA-Public Use
  Company Number: US-JNJFOC-20120311337

PATIENT
  Sex: Male

DRUGS (1)
  1. TOPAMAX [Suspect]
     Indication: FOETAL EXPOSURE DURING PREGNANCY
     Route: 064
     Dates: start: 20090101, end: 20100101

REACTIONS (1)
  - DERMOID CYST [None]
